FAERS Safety Report 11646187 (Version 2)
Quarter: 2016Q2

REPORT INFORMATION
  Report Type: Spontaneous
  Country: US (occurrence: US)
  Receive Date: 20151020
  Receipt Date: 20160429
  Transmission Date: 20160815
  Serious: No
  Sender: FDA-Public Use
  Company Number: US-ROCHE-1607095

PATIENT
  Sex: Female
  Weight: 50.39 kg

DRUGS (2)
  1. ESBRIET [Suspect]
     Active Substance: PIRFENIDONE
     Indication: IDIOPATHIC PULMONARY FIBROSIS
     Dosage: SHIPPED ON 23/JUN/2015.
     Route: 048
     Dates: start: 20150623
  2. ESBRIET [Suspect]
     Active Substance: PIRFENIDONE
     Dosage: TAKE 2 CAPSULES BY MOUTH THREE TIMES A DAY WITH FOOD
     Route: 048

REACTIONS (3)
  - Decreased appetite [Unknown]
  - Gastric disorder [Unknown]
  - Oropharyngeal pain [Unknown]
